FAERS Safety Report 6676663-7 (Version None)
Quarter: 2010Q2

REPORT INFORMATION
  Report Type: 
  Country: None (occurrence: None)
  Receive Date: 20100412
  Receipt Date: 20100407
  Transmission Date: 20101027
  Serious: Yes (Other)
  Sender: FDA-Public Use
  Company Number: BR-B.I. PHARMACEUTICALS,INC./RIDGEFIELD-2010-BR-00302BR

PATIENT
  Sex: Female

DRUGS (2)
  1. ATENSINA [Suspect]
     Indication: HYPERTENSION
     Dosage: 0.1 MG
     Route: 048
     Dates: start: 20090101
  2. GUTTALAX [Concomitant]

REACTIONS (1)
  - BLOOD PRESSURE INCREASED [None]
